FAERS Safety Report 5705652-1 (Version None)
Quarter: 2008Q2

REPORT INFORMATION
  Report Type: 
  Country: None (occurrence: None)
  Receive Date: 20080415
  Receipt Date: 20080409
  Transmission Date: 20081010
  Serious: Yes (Other)
  Sender: FDA-Public Use
  Company Number: US-BRISTOL-MYERS SQUIBB COMPANY-14145114

PATIENT
  Age: 45 Year
  Sex: Female
  Weight: 64 kg

DRUGS (16)
  1. ABILIFY [Suspect]
  2. CHANTIX [Suspect]
     Indication: EX-SMOKER
     Dosage: IN 2007,STARTED AT A DOSE OF 0.5MG DAILY FOR 3 DAYS FOLLOWED BY 0.5 MG TWICE DAILY FOR FOUR DAYS
     Dates: start: 20071117, end: 20080117
  3. XANAX [Suspect]
  4. VISTARIL [Suspect]
     Indication: ANXIETY
     Dosage: L3MAR08: TWO 50MG CAPSULES(BEDTIME) MAR08: DOSE DECREASED TO ONE 50MG CAPSULE(BEDTIME)
     Dates: start: 20080313, end: 20080301
  5. VISTARIL [Suspect]
     Indication: INSOMNIA
     Dosage: L3MAR08: TWO 50MG CAPSULES(BEDTIME) MAR08: DOSE DECREASED TO ONE 50MG CAPSULE(BEDTIME)
     Dates: start: 20080313, end: 20080301
  6. VITAMIN B-12 [Concomitant]
  7. LAMICTAL [Concomitant]
  8. XOPENEX [Concomitant]
  9. ASCORBIC ACID [Concomitant]
  10. BUSPAR [Concomitant]
  11. ATENOLOL [Concomitant]
  12. TEGRETOL [Concomitant]
  13. NEXIUM [Concomitant]
  14. DIMETHICONE [Concomitant]
  15. DOCUSATE SODIUM [Concomitant]
  16. ASPIRIN [Concomitant]

REACTIONS (40)
  - ABNORMAL DREAMS [None]
  - ACTIVITIES OF DAILY LIVING IMPAIRED [None]
  - AGGRESSION [None]
  - ANXIETY DISORDER [None]
  - BALANCE DISORDER [None]
  - BLOOD PRESSURE DECREASED [None]
  - CHEST PAIN [None]
  - CHILLS [None]
  - DEHYDRATION [None]
  - DISORIENTATION [None]
  - DISSOCIATION [None]
  - DISTURBANCE IN ATTENTION [None]
  - DIZZINESS [None]
  - DRUG HYPERSENSITIVITY [None]
  - DRY EYE [None]
  - EMOTIONAL DISORDER [None]
  - EMPHYSEMA [None]
  - EXAGGERATED STARTLE RESPONSE [None]
  - EYE IRRITATION [None]
  - EYE PAIN [None]
  - FEELING ABNORMAL [None]
  - HALLUCINATION [None]
  - HEART RATE INCREASED [None]
  - HOT FLUSH [None]
  - HYPERHIDROSIS [None]
  - HYPERTENSION [None]
  - INSOMNIA [None]
  - PANIC ATTACK [None]
  - PSYCHOMOTOR HYPERACTIVITY [None]
  - PSYCHOMOTOR SKILLS IMPAIRED [None]
  - RESPIRATORY DISORDER [None]
  - SENSORY DISTURBANCE [None]
  - THINKING ABNORMAL [None]
  - THIRST [None]
  - TINNITUS [None]
  - TREMOR [None]
  - UNEVALUABLE EVENT [None]
  - VISION BLURRED [None]
  - VISUAL FIELD DEFECT [None]
  - WEIGHT INCREASED [None]
